FAERS Safety Report 5622544-7 (Version None)
Quarter: 2008Q1

REPORT INFORMATION
  Report Type: 
  Country: None (occurrence: None)
  Receive Date: 20080114
  Receipt Date: 20071030
  Transmission Date: 20080703
  Serious: Yes (Other)
  Sender: FDA-Public Use
  Company Number: A03200706248

PATIENT
  Age: 69 Year
  Sex: Male

DRUGS (11)
  1. PLAVIX [Suspect]
     Indication: ANGIOPLASTY
     Dosage: 75 MG QD - ORAL
     Route: 048
     Dates: start: 20071024
  2. PLAVIX [Suspect]
     Indication: STENT PLACEMENT
     Dosage: 75 MG QD - ORAL
     Route: 048
     Dates: start: 20071024
  3. ACETYLSALICYLIC ACID SRT [Concomitant]
  4. ATORVASTATIN CALCIUM [Concomitant]
  5. DILTIAZEM HYDROCHLORIDE [Concomitant]
  6. SITAGLIPTIN [Concomitant]
  7. NAPROXEN SODIUM [Concomitant]
  8. ESOMEPRAZOLE [Concomitant]
  9. SERTRALINE HYDROCHLORIDE [Concomitant]
  10. GLYCERYL TRINITRATE [Concomitant]
  11. BUPROPION HYDROCHLORIDE [Concomitant]

REACTIONS (1)
  - HAEMORRHAGE URINARY TRACT [None]
